FAERS Safety Report 18846062 (Version 12)
Quarter: 2025Q1

REPORT INFORMATION
  Report Type: Spontaneous
  Country: US (occurrence: US)
  Receive Date: 20210204
  Receipt Date: 20250220
  Transmission Date: 20250408
  Serious: Yes (Hospitalization, Other)
  Sender: PFIZER
  Company Number: US-PFIZER INC-2021099110

PATIENT
  Age: 80 Year
  Sex: Female
  Weight: 62.14 kg

DRUGS (3)
  1. IBRANCE [Suspect]
     Active Substance: PALBOCICLIB
     Indication: Breast cancer female
  2. IBRANCE [Suspect]
     Active Substance: PALBOCICLIB
     Indication: Bone cancer
     Route: 048
  3. IBRANCE [Suspect]
     Active Substance: PALBOCICLIB
     Dates: start: 20250120

REACTIONS (12)
  - COVID-19 [Not Recovered/Not Resolved]
  - Neutropenia [Unknown]
  - Thrombocytopenia [Unknown]
  - Post-acute COVID-19 syndrome [Unknown]
  - Nasopharyngitis [Unknown]
  - Alopecia [Unknown]
  - Weight increased [Unknown]
  - Anaemia [Recovered/Resolved]
  - Pain in extremity [Unknown]
  - Full blood count decreased [Unknown]
  - Lung disorder [Unknown]
  - Anaemia [Unknown]
